FAERS Safety Report 6018333-4 (Version None)
Quarter: 2008Q4

REPORT INFORMATION
  Report Type: 
  Country: None (occurrence: None)
  Receive Date: 20081223
  Receipt Date: 20081215
  Transmission Date: 20090506
  Serious: Yes (Hospitalization)
  Sender: FDA-Public Use
  Company Number: DE-SANOFI-SYNTHELABO-A04200801445

PATIENT
  Sex: Female
  Weight: 70.5 kg

DRUGS (5)
  1. FTY720 VS PLACEBO [Concomitant]
     Indication: MULTIPLE SCLEROSIS
     Dosage: FTY720 1.25 MG AND 0.5 MG ORALLY ONCE DAILY OR PLACEBO
     Route: 048
     Dates: start: 20061201
  2. ALCOHOL [Suspect]
     Indication: DRUG USE FOR UNKNOWN INDICATION
     Dosage: UNK
     Route: 048
  3. HYDROCHLOROTHIAZIDE [Interacting]
     Indication: HYPERTENSION
     Dosage: UNK
     Route: 065
  4. SEROQUEL [Interacting]
     Indication: DEPRESSION
     Dosage: UNK
     Route: 048
  5. ZOLPIDEM [Interacting]
     Indication: DEPRESSION
     Dosage: UNK
     Route: 065

REACTIONS (4)
  - DRUG INTERACTION [None]
  - HYPOTENSION [None]
  - LOSS OF CONSCIOUSNESS [None]
  - SYNCOPE [None]
